FAERS Safety Report 5354899-5 (Version None)
Quarter: 2007Q2

REPORT INFORMATION
  Report Type: 
  Country: None (occurrence: None)
  Receive Date: 20070611
  Receipt Date: 20070531
  Transmission Date: 20071010
  Serious: Yes (Death)
  Sender: FDA-Public Use
  Company Number: 2007-159391-NL

PATIENT
  Sex: Male

DRUGS (1)
  1. ZEMURON [Suspect]

REACTIONS (1)
  - VICTIM OF HOMICIDE [None]
